FAERS Safety Report 25952894 (Version 1)
Quarter: 2025Q4

REPORT INFORMATION
  Report Type: Spontaneous
  Country: US (occurrence: None)
  Receive Date: 20251023
  Receipt Date: 20251023
  Transmission Date: 20260117
  Serious: Yes (Other)
  Sender: FDA-CTU
  Company Number: None

PATIENT
  Age: 75 Year
  Sex: Male
  Weight: 76.5 kg

DRUGS (3)
  1. VOLTAREN [Suspect]
     Active Substance: DICLOFENAC SODIUM
     Indication: Arthropathy
     Dates: start: 20251016, end: 20251018
  2. Metopralol succ [Concomitant]
  3. NM-6603 [Concomitant]
     Active Substance: NM-6603

REACTIONS (2)
  - Chest discomfort [None]
  - Electrocardiogram abnormal [None]

NARRATIVE: CASE EVENT DATE: 20251018
